FAERS Safety Report 23796205 (Version 1)
Quarter: 2024Q2

REPORT INFORMATION
  Report Type: Spontaneous
  Country: LK (occurrence: LK)
  Receive Date: 20240430
  Receipt Date: 20240430
  Transmission Date: 20240716
  Serious: Yes (Death, Hospitalization)
  Sender: FDA-Public Use
  Company Number: LK-STRIDES ARCOLAB LIMITED-2024SP004985

PATIENT
  Age: 27 Year
  Sex: Female
  Weight: 78 kg

DRUGS (18)
  1. LEVETIRACETAM [Suspect]
     Active Substance: LEVETIRACETAM
     Indication: New onset refractory status epilepticus
     Dosage: UNK
     Route: 065
  2. MORPHINE SULFATE [Suspect]
     Active Substance: MORPHINE SULFATE
     Indication: New onset refractory status epilepticus
     Dosage: UNK
     Route: 065
  3. MIDAZOLAM [Suspect]
     Active Substance: MIDAZOLAM
     Indication: New onset refractory status epilepticus
     Dosage: 2 MILLIGRAM
     Route: 042
  4. THIOPENTAL SODIUM [Suspect]
     Active Substance: THIOPENTAL SODIUM
     Indication: New onset refractory status epilepticus
     Dosage: UNK
     Route: 065
  5. MAGNESIUM SULFATE [Suspect]
     Active Substance: MAGNESIUM SULFATE\MAGNESIUM SULFATE HEPTAHYDRATE
     Indication: New onset refractory status epilepticus
     Dosage: UNK
     Route: 065
  6. MANNITOL [Suspect]
     Active Substance: MANNITOL
     Indication: New onset refractory status epilepticus
     Dosage: UNK
     Route: 065
  7. ATRACURIUM BESYLATE [Suspect]
     Active Substance: ATRACURIUM BESYLATE
     Indication: New onset refractory status epilepticus
     Dosage: 25 MILLIGRAM
     Route: 065
  8. PHENYTOIN [Suspect]
     Active Substance: PHENYTOIN
     Indication: New onset refractory status epilepticus
     Dosage: UNK
     Route: 065
  9. LACOSAMIDE [Suspect]
     Active Substance: LACOSAMIDE
     Indication: New onset refractory status epilepticus
     Dosage: UNK
     Route: 065
  10. THYROXINE [Concomitant]
     Active Substance: LEVOTHYROXINE
     Indication: Hypothyroidism
     Dosage: UNK
     Route: 065
  11. BUPIVACAINE [Concomitant]
     Active Substance: BUPIVACAINE
     Indication: Spinal anaesthesia
     Dosage: 12.5 MILLIGRAM
     Route: 065
  12. SODIUM BICARBONATE [Concomitant]
     Active Substance: SODIUM BICARBONATE
     Indication: Acidosis
     Dosage: UNK
     Route: 065
  13. OXYTOCIN [Concomitant]
     Active Substance: OXYTOCIN
     Indication: Haemorrhage prophylaxis
     Dosage: UNK
     Route: 065
  14. HYDROCORTISONE [Concomitant]
     Active Substance: HYDROCORTISONE
     Indication: Pulmonary oedema
     Dosage: UNK
     Route: 042
  15. NOREPINEPHRINE [Concomitant]
     Active Substance: NOREPINEPHRINE\NOREPINEPHRINE BITARTRATE
     Indication: Hypotension
     Dosage: 0.3 MICROGRAM/KILOGRAM/MINUTE
     Route: 065
  16. NOREPINEPHRINE [Concomitant]
     Active Substance: NOREPINEPHRINE\NOREPINEPHRINE BITARTRATE
     Indication: Cardiomyopathy
  17. EPINEPHRINE [Concomitant]
     Active Substance: EPINEPHRINE
     Indication: Cardiomyopathy
     Dosage: UNK (0.3-0.6 MICROGRAM/KILOGRAM INFUSION)
     Route: 065
  18. DOPAMINE [Concomitant]
     Active Substance: DOPAMINE HYDROCHLORIDE
     Indication: Cardiomyopathy
     Dosage: UNK (10-20 MICROGRAM/KILOGRAM INFUSION)
     Route: 065

REACTIONS (3)
  - Renal tubular necrosis [Fatal]
  - Drug ineffective [Fatal]
  - Off label use [Unknown]
